FAERS Safety Report 9279077 (Version 2)
Quarter: 2013Q2

REPORT INFORMATION
  Report Type: Spontaneous
  Country: US (occurrence: US)
  Receive Date: 20130508
  Receipt Date: 20130516
  Transmission Date: 20140414
  Serious: Yes (Hospitalization)
  Sender: FDA-Public Use
  Company Number: PHEH2013US009944

PATIENT
  Age: 66 Year
  Sex: Female

DRUGS (15)
  1. GILENYA [Suspect]
     Indication: MULTIPLE SCLEROSIS
     Dosage: 1 DF, QD
     Route: 048
     Dates: start: 20121011
  2. IBUPROFEN [Concomitant]
     Dosage: 1 DF, TID
     Route: 048
  3. PRAVASTATIN [Concomitant]
     Dosage: 1 DF, QD
  4. ASPIRIN [Concomitant]
     Dosage: 1 DF, QD
     Route: 048
  5. BACLOFEN [Concomitant]
     Dosage: 1 DF, BID
     Route: 048
  6. VITAMIN D3 [Concomitant]
     Dosage: 1 DF, QD
     Route: 048
  7. CALCITRATE [Concomitant]
     Dosage: 1 DF, QD
     Route: 048
  8. OCUVITE PRESERVISION [Concomitant]
     Dosage: 1 DF, BID
     Route: 048
  9. SYSTANE [Concomitant]
  10. AMITRIPTYLINE [Concomitant]
     Dosage: 1 DF, QHS
     Route: 048
  11. TYLENOL [Concomitant]
     Indication: PAIN
  12. METRONIDAZOLE [Concomitant]
     Route: 061
  13. LEXAPRO [Concomitant]
     Dosage: 1 DF, QHS
     Route: 048
  14. ZITHROMAX Z-PAK [Concomitant]
     Dosage: 250 MG, UNK
     Route: 048
  15. DALFAMPRIDINE [Concomitant]
     Dosage: 10 MG, UNK
     Route: 048

REACTIONS (59)
  - Encephalitis [Recovering/Resolving]
  - Meningitis aseptic [Recovering/Resolving]
  - Central nervous system lesion [Unknown]
  - Uveitis [Recovering/Resolving]
  - Visual acuity reduced [Unknown]
  - Visual impairment [Unknown]
  - Varicella [Recovering/Resolving]
  - Pyrexia [Unknown]
  - Vasculitis [Unknown]
  - Convulsion [Unknown]
  - Confusional state [Unknown]
  - Dysarthria [Recovering/Resolving]
  - Lethargy [Unknown]
  - Somnolence [Unknown]
  - Mental status changes [Recovering/Resolving]
  - Cognitive disorder [Unknown]
  - Musculoskeletal discomfort [Unknown]
  - Foaming at mouth [Unknown]
  - Loss of consciousness [Unknown]
  - Electroencephalogram abnormal [Recovering/Resolving]
  - Hypophagia [Unknown]
  - Aphasia [Unknown]
  - Syncope [Unknown]
  - Dysphagia [Unknown]
  - Bruxism [Unknown]
  - Pneumonia aspiration [Unknown]
  - Rales [Unknown]
  - Urinary retention [Unknown]
  - Pleocytosis [Unknown]
  - Normochromic normocytic anaemia [Unknown]
  - Red blood cell count decreased [Unknown]
  - Haemoglobin decreased [Unknown]
  - Mean cell haemoglobin concentration decreased [Unknown]
  - Fall [Unknown]
  - Psychotic disorder [Unknown]
  - White blood cell count increased [Unknown]
  - Blood albumin decreased [Unknown]
  - Activated partial thromboplastin time prolonged [Unknown]
  - Platelet count decreased [Unknown]
  - Blood alkaline phosphatase increased [Unknown]
  - Blood calcium decreased [Unknown]
  - Blood glucose increased [Unknown]
  - CSF monocyte count decreased [Unknown]
  - CSF neutrophil count increased [Unknown]
  - CSF protein increased [Unknown]
  - Haematocrit decreased [Unknown]
  - Monocyte count decreased [Unknown]
  - Neutrophil count increased [Unknown]
  - Platelet count increased [Unknown]
  - Dyslipidaemia [Unknown]
  - Red cell distribution width increased [Unknown]
  - Red blood cells CSF positive [Unknown]
  - Multiple sclerosis [Unknown]
  - Feeling abnormal [Unknown]
  - Depression [Unknown]
  - Asthenia [Unknown]
  - Malaise [Unknown]
  - Lymphocyte count decreased [Unknown]
  - No therapeutic response [Unknown]
